FAERS Safety Report 12722812 (Version 1)
Quarter: 2016Q3

REPORT INFORMATION
  Report Type: Report from Study
  Country: US (occurrence: US)
  Receive Date: 20160907
  Receipt Date: 20160907
  Transmission Date: 20161109
  Serious: Yes (Hospitalization, Other)
  Sender: FDA-Public Use
  Company Number: US-AMGEN-USASL2016118942

PATIENT
  Age: 66 Year
  Sex: Female

DRUGS (2)
  1. ENBREL [Suspect]
     Active Substance: ETANERCEPT
     Indication: RHEUMATOID ARTHRITIS
     Dosage: UNK MG, WEEKLY
     Route: 065
  2. PREDNISONE. [Concomitant]
     Active Substance: PREDNISONE
     Dosage: UNK

REACTIONS (14)
  - Bronchitis [Unknown]
  - Injection site pain [Unknown]
  - Abdominal discomfort [Unknown]
  - Injection site erythema [Recovered/Resolved]
  - Pleural effusion [Unknown]
  - Dysphagia [Unknown]
  - Gastric disorder [Unknown]
  - Injection site scar [Unknown]
  - Increased tendency to bruise [Unknown]
  - Injection site swelling [Recovered/Resolved]
  - Rectal haemorrhage [Unknown]
  - Pain in extremity [Unknown]
  - Injection site pruritus [Recovered/Resolved]
  - Drug effect incomplete [Unknown]

NARRATIVE: CASE EVENT DATE: 201608
